FAERS Safety Report 5865341-X (Version None)
Quarter: 2008Q3

REPORT INFORMATION
  Report Type: 
  Country: None (occurrence: None)
  Receive Date: 20080829
  Receipt Date: 20080820
  Transmission Date: 20090109
  Serious: Yes (Hospitalization)
  Sender: FDA-Public Use
  Company Number: CN-ASTRAZENECA-2008AP06357

PATIENT
  Age: 51 Year
  Sex: Female

DRUGS (6)
  1. NAROPIN [Suspect]
     Indication: EPIDURAL ANAESTHESIA
     Route: 037
     Dates: start: 20080425, end: 20080425
  2. NAROPIN [Suspect]
     Route: 037
     Dates: start: 20080425, end: 20080425
  3. LIDOCAINE [Suspect]
     Indication: EPIDURAL ANAESTHESIA
     Dates: start: 20080425, end: 20080425
  4. DEXAMETHASONE TAB [Suspect]
     Indication: EPIDURAL ANAESTHESIA
     Dates: start: 20080425, end: 20080425
  5. DIOVAN [Concomitant]
     Indication: BLOOD PRESSURE
  6. NITRENDIPINE [Concomitant]
     Indication: BLOOD PRESSURE

REACTIONS (1)
  - NEURITIS [None]
